FAERS Safety Report 23217156 (Version 2)
Quarter: 2023Q4

REPORT INFORMATION
  Report Type: Report from Study
  Country: GB (occurrence: GB)
  Receive Date: 20231122
  Receipt Date: 20231124
  Transmission Date: 20240110
  Serious: Yes (Other)
  Sender: FDA-Public Use
  Company Number: GB-002147023-NVSC2023GB013132

PATIENT
  Age: 35 Year
  Sex: Female

DRUGS (3)
  1. KESIMPTA [Suspect]
     Active Substance: OFATUMUMAB
     Indication: Multiple sclerosis
     Dosage: 20 MG, QMO
     Route: 058
     Dates: start: 20230110
  2. KESIMPTA [Suspect]
     Active Substance: OFATUMUMAB
     Dosage: 20 MG, QMO
     Route: 058
  3. KESIMPTA [Suspect]
     Active Substance: OFATUMUMAB
     Dosage: 20 MG, QMO
     Route: 058
     Dates: start: 20231113

REACTIONS (21)
  - Lower respiratory tract infection [Unknown]
  - Influenza like illness [Unknown]
  - Headache [Unknown]
  - Body temperature increased [Unknown]
  - Arthralgia [Unknown]
  - Insomnia [Unknown]
  - Lip blister [Recovered/Resolved]
  - Rhinorrhoea [Unknown]
  - Oropharyngeal pain [Unknown]
  - Cough [Unknown]
  - Paraesthesia [Unknown]
  - Pain in extremity [Unknown]
  - Electric shock sensation [Unknown]
  - Anaemia [Unknown]
  - Gait disturbance [Unknown]
  - Fatigue [Recovered/Resolved]
  - Nasopharyngitis [Unknown]
  - Nasal congestion [Unknown]
  - Injection site reaction [Recovered/Resolved]
  - Dyspnoea [Recovered/Resolved]
  - Device failure [Unknown]

NARRATIVE: CASE EVENT DATE: 20230110
